FAERS Safety Report 9370275 (Version 1)
Quarter: 2013Q2

REPORT INFORMATION
  Report Type: Spontaneous
  Country: US (occurrence: US)
  Receive Date: 20130626
  Receipt Date: 20130626
  Transmission Date: 20140414
  Serious: No
  Sender: FDA-Public Use
  Company Number: US-009507513-1304USA015518

PATIENT
  Age: 19 Month
  Sex: Male

DRUGS (1)
  1. CLARITIN ORAL SOLUTION [Suspect]
     Indication: HYPERSENSITIVITY
     Dosage: UNK, PRN
     Route: 048

REACTIONS (3)
  - Accidental exposure to product by child [Unknown]
  - Drug administered to patient of inappropriate age [Unknown]
  - Off label use [Unknown]
